FAERS Safety Report 8131232-7 (Version None)
Quarter: 2012Q1

REPORT INFORMATION
  Report Type: 
  Country: None (occurrence: None)
  Receive Date: 20120210
  Receipt Date: 20120210
  Transmission Date: 20120608
  Serious: Yes (Death)
  Sender: FDA-Public Use
  Company Number: None

PATIENT
  Age: 58 Year
  Sex: Female
  Weight: 68.5 kg

DRUGS (10)
  1. ALBUTEROL [Concomitant]
  2. SENNA [Concomitant]
  3. NEXIUM [Concomitant]
  4. BUTALBITAL [Concomitant]
  5. ZOFRAN [Concomitant]
  6. MORPHINE [Concomitant]
  7. MS CONTIN [Concomitant]
  8. PAZOPANIB 800 MG [Suspect]
     Indication: SMALL CELL LUNG CANCER STAGE UNSPECIFIED
     Dosage: PO DAILY
     Route: 048
     Dates: start: 20111114, end: 20120129
  9. ATIVAN [Concomitant]
  10. COLACE [Concomitant]

REACTIONS (3)
  - UNRESPONSIVE TO STIMULI [None]
  - HAEMOPTYSIS [None]
  - CARDIAC ARREST [None]
